FAERS Safety Report 12300082 (Version 1)
Quarter: 2016Q2

REPORT INFORMATION
  Report Type: Spontaneous
  Country: US (occurrence: US)
  Receive Date: 20160425
  Receipt Date: 20160425
  Transmission Date: 20160815
  Serious: Yes (Hospitalization, Other)
  Sender: FDA-Public Use
  Company Number: US-AUROBINDO-AUR-APL-2016-04940

PATIENT

DRUGS (1)
  1. METHADONE [Suspect]
     Active Substance: METHADONE HYDROCHLORIDE
     Indication: PRODUCT USED FOR UNKNOWN INDICATION
     Route: 065

REACTIONS (19)
  - Respiratory depression [Recovering/Resolving]
  - Atelectasis [Recovering/Resolving]
  - Liver injury [Recovering/Resolving]
  - Aphasia [Recovering/Resolving]
  - Asthenia [Recovering/Resolving]
  - Cardiac disorder [Recovering/Resolving]
  - Encephalitis [Recovering/Resolving]
  - Multiple organ dysfunction syndrome [Recovering/Resolving]
  - Blood pressure increased [Recovering/Resolving]
  - Ataxia [Recovering/Resolving]
  - Hypoxia [Recovering/Resolving]
  - Left ventricular hypertrophy [Recovering/Resolving]
  - Abasia [Recovering/Resolving]
  - Miosis [Recovering/Resolving]
  - Tachycardia [Recovering/Resolving]
  - Acute kidney injury [Unknown]
  - Unresponsive to stimuli [Recovering/Resolving]
  - Overdose [Unknown]
  - Pyrexia [Recovering/Resolving]
